FAERS Safety Report 8954535 (Version 2)
Quarter: 2013Q1

REPORT INFORMATION
  Report Type: Spontaneous
  Country: JP (occurrence: JP)
  Receive Date: 20121210
  Receipt Date: 20130102
  Transmission Date: 20140127
  Serious: Yes (Other)
  Sender: FDA-Public Use
  Company Number: PHHY2012JP112961

PATIENT
  Age: 54 Year
  Sex: Female

DRUGS (3)
  1. ZOMETA [Suspect]
     Indication: BREAST CANCER METASTATIC
     Dosage: 4 MG, PER ADMINISTRATION
     Route: 042
  2. HALAVEN [Concomitant]
     Dosage: UNK UKN, UNK
     Dates: start: 20120220
  3. DECADRON [Concomitant]
     Dosage: UNK UKN, UNK
     Dates: start: 20120419

REACTIONS (7)
  - Osteonecrosis of jaw [Unknown]
  - Breath odour [Unknown]
  - Erythema [Unknown]
  - Swelling [Unknown]
  - Gingival infection [Unknown]
  - Toothache [Unknown]
  - Stomatitis [Unknown]
